FAERS Safety Report 8022082-0 (Version None)
Quarter: 2012Q1

REPORT INFORMATION
  Report Type: 
  Country: None (occurrence: None)
  Receive Date: 20120104
  Receipt Date: 20111229
  Transmission Date: 20120608
  Serious: Yes (Death, Other)
  Sender: FDA-Public Use
  Company Number: US-CELGENEUS-163-21880-11101900

PATIENT
  Sex: Female
  Weight: 66.738 kg

DRUGS (10)
  1. ASPIRIN [Concomitant]
     Route: 065
  2. METFORMIN HCL [Concomitant]
     Route: 065
  3. REVLIMID [Suspect]
     Indication: MULTIPLE MYELOMA
     Dosage: 10 MILLIGRAM
     Route: 048
     Dates: start: 20080501, end: 20110801
  4. DECADRON [Concomitant]
     Route: 065
  5. PRAVASTATIN [Concomitant]
     Route: 065
  6. MULTI-VITAMIN [Concomitant]
     Route: 065
  7. VITAMIN C [Concomitant]
     Route: 065
  8. SYNTHROID [Concomitant]
     Route: 065
  9. VITAMIN E [Concomitant]
     Route: 065
  10. VITAMIN D [Concomitant]
     Route: 065

REACTIONS (3)
  - RENAL FAILURE [None]
  - MULTIPLE MYELOMA [None]
  - PNEUMONIA [None]
